FAERS Safety Report 6392978-4 (Version None)
Quarter: 2009Q4

REPORT INFORMATION
  Report Type: 
  Country: None (occurrence: None)
  Receive Date: 20091008
  Receipt Date: 20090930
  Transmission Date: 20100525
  Serious: Yes (Hospitalization, Other)
  Sender: FDA-Public Use
  Company Number: US-BIOGENIDEC-2009BI009715

PATIENT
  Age: 49 Year
  Sex: Female
  Weight: 84 kg

DRUGS (9)
  1. AVONEX [Suspect]
     Indication: MULTIPLE SCLEROSIS
     Route: 030
     Dates: start: 20040101
  2. VENTOLIN [Concomitant]
     Indication: MULTIPLE ALLERGIES
     Dates: start: 20080101
  3. SYMBICORT [Concomitant]
     Indication: MULTIPLE ALLERGIES
     Dates: start: 20080101
  4. TRICOR [Concomitant]
     Indication: BLOOD PRESSURE
     Dates: start: 19990101
  5. XYZAL [Concomitant]
     Indication: MULTIPLE ALLERGIES
     Dates: start: 19990101
  6. EFFEXOR XR [Concomitant]
     Indication: DEPRESSION
     Dates: start: 19990101
  7. NEXIUM [Concomitant]
     Indication: GASTROOESOPHAGEAL REFLUX DISEASE
     Dates: start: 19990101
  8. TRAZODONE HCL [Concomitant]
     Indication: DEPRESSION
     Dates: start: 19990101
  9. ALTACE [Concomitant]
     Indication: BLOOD PRESSURE
     Dates: start: 20020101

REACTIONS (12)
  - ANGINA PECTORIS [None]
  - BLOOD CHOLESTEROL ABNORMAL [None]
  - CONVULSION [None]
  - CORONARY ARTERY OCCLUSION [None]
  - DRY EYE [None]
  - GRANULOMA ANNULARE [None]
  - INTERVERTEBRAL DISC DEGENERATION [None]
  - MIGRAINE [None]
  - MULTIPLE SCLEROSIS [None]
  - MUSCLE SPASMS [None]
  - RESTLESS LEGS SYNDROME [None]
  - SCIATICA [None]
